FAERS Safety Report 16347908 (Version 1)
Quarter: 2019Q2

REPORT INFORMATION
  Report Type: Spontaneous
  Country: US (occurrence: US)
  Receive Date: 20190417
  Receipt Date: 20190417
  Transmission Date: 20190711
  Serious: No
  Sender: FDA-Public Use
  Company Number: None

PATIENT
  Age: 54 Year
  Sex: Male

DRUGS (2)
  1. METHOTREXATE (METHOTREXATE SODIUM) [Suspect]
     Active Substance: METHOTREXATE SODIUM
     Indication: RHEUMATOID ARTHRITIS
     Dosage: ?          OTHER FREQUENCY:SAME DAY/WEEKLY;?
     Route: 048
     Dates: start: 201507
  2. METHOTREXATE (METHOTREXATE SODIUM) [Suspect]
     Active Substance: METHOTREXATE SODIUM
     Indication: RHEUMATOID FACTOR
     Dosage: ?          OTHER FREQUENCY:SAME DAY/WEEKLY;?
     Route: 048
     Dates: start: 201507

REACTIONS (3)
  - Tooth abscess [None]
  - Neoplasm malignant [None]
  - Nephrectomy [None]
